FAERS Safety Report 10996795 (Version 1)
Quarter: 2015Q2

REPORT INFORMATION
  Report Type: Spontaneous
  Country: US (occurrence: None)
  Receive Date: 20150407
  Receipt Date: 20150407
  Transmission Date: 20150821
  Serious: No
  Sender: FDA-Public Use
  Company Number: None

PATIENT
  Age: 43 Year
  Sex: Female
  Weight: 103.42 kg

DRUGS (6)
  1. TRULICITY [Concomitant]
     Active Substance: DULAGLUTIDE
  2. PROTONIX [Concomitant]
     Active Substance: PANTOPRAZOLE SODIUM
  3. LISINOPRIL. [Concomitant]
     Active Substance: LISINOPRIL
  4. METFORMIN [Concomitant]
     Active Substance: METFORMIN HYDROCHLORIDE
  5. EFFEXOR [Concomitant]
     Active Substance: VENLAFAXINE HYDROCHLORIDE
  6. TRULICITY [Suspect]
     Active Substance: DULAGLUTIDE
     Indication: DIABETES MELLITUS
     Dosage: ONE INJECTION, WEEKLY, GIVEN INTO/UNDER THE SKIN
     Dates: start: 20150302, end: 20150402

REACTIONS (8)
  - Eating disorder [None]
  - Gastrointestinal sounds abnormal [None]
  - Eructation [None]
  - Diarrhoea [None]
  - Abdominal discomfort [None]
  - Abdominal distension [None]
  - Abdominal rigidity [None]
  - Flatulence [None]

NARRATIVE: CASE EVENT DATE: 20150302
